FAERS Safety Report 10261714 (Version 3)
Quarter: 2014Q3

REPORT INFORMATION
  Report Type: Spontaneous
  Country: US (occurrence: US)
  Receive Date: 20140626
  Receipt Date: 20140814
  Transmission Date: 20150326
  Serious: No
  Sender: FDA-Public Use
  Company Number: US-PFIZER INC-2014170765

PATIENT
  Age: 69 Year
  Sex: Female
  Weight: 68.49 kg

DRUGS (3)
  1. SUTENT [Suspect]
     Active Substance: SUNITINIB MALATE
     Dosage: 50 MG, CYCLIC (4 WEEKS WITH 2 WEEKS OFF)
     Dates: start: 20140529
  2. XARELTO [Concomitant]
     Active Substance: RIVAROXABAN
     Dosage: UNK, 2X/DAY
  3. SUTENT [Suspect]
     Active Substance: SUNITINIB MALATE
     Dosage: 50 MG, DAILY
     Dates: start: 2014

REACTIONS (8)
  - Decreased appetite [Unknown]
  - Weight decreased [Unknown]
  - Fatigue [Unknown]
  - Dysgeusia [Recovering/Resolving]
  - Blood pressure increased [Unknown]
  - Blood urine present [Recovered/Resolved]
  - Dyspnoea [Not Recovered/Not Resolved]
  - Bladder pain [Recovered/Resolved]

NARRATIVE: CASE EVENT DATE: 20140711
